FAERS Safety Report 8590312-2 (Version None)
Quarter: 2012Q3

REPORT INFORMATION
  Report Type: 
  Country: None (occurrence: None)
  Receive Date: 20120813
  Receipt Date: 20120807
  Transmission Date: 20120928
  Serious: Yes (Other)
  Sender: FDA-Public Use
  Company Number: JP-GLAXOSMITHKLINE-B0821869A

PATIENT
  Age: 70 Year
  Sex: Male

DRUGS (3)
  1. ARIXTRA [Suspect]
     Indication: DEEP VEIN THROMBOSIS
     Dosage: 5MG PER DAY
     Route: 058
     Dates: start: 20120731, end: 20120806
  2. HEPARIN SODIUM [Concomitant]
     Indication: DEEP VEIN THROMBOSIS
     Route: 065
     Dates: start: 20120718, end: 20120724
  3. HEPARIN SODIUM [Concomitant]
     Route: 065
     Dates: start: 20120725, end: 20120730

REACTIONS (2)
  - THROMBOCYTOPENIA [None]
  - HEPARIN-INDUCED THROMBOCYTOPENIA [None]
